FAERS Safety Report 9394853 (Version 2)
Quarter: 2013Q3

REPORT INFORMATION
  Report Type: Spontaneous
  Country: IT (occurrence: IT)
  Receive Date: 20130711
  Receipt Date: 20130814
  Transmission Date: 20140515
  Serious: Yes (Hospitalization)
  Sender: FDA-Public Use
  Company Number: IT-SHIRE-ALL1-2013-04521

PATIENT
  Age: 14 Year
  Sex: Female
  Weight: 48 kg

DRUGS (3)
  1. MESAVANCOL [Suspect]
     Indication: COLITIS ULCERATIVE
     Dosage: 2400 MG (TWO 1200 MG), 1X/DAY:QD
     Route: 048
     Dates: start: 20130215, end: 20130516
  2. AZATHIOPRINE [Suspect]
     Indication: COLITIS ULCERATIVE
     Dosage: 1 MG/KG, 1X/DAY:QD
     Route: 048
     Dates: start: 20130325, end: 20130430
  3. AZATHIOPRINE [Suspect]
     Dosage: 1.5 MG/KG, 1X/DAY:QD
     Route: 048
     Dates: start: 20130501, end: 20130515

REACTIONS (3)
  - Renal failure [Recovered/Resolved]
  - Colitis ulcerative [Unknown]
  - Off label use [Recovered/Resolved]
